FAERS Safety Report 8390221-8 (Version None)
Quarter: 2012Q2

REPORT INFORMATION
  Report Type: 
  Country: None (occurrence: None)
  Receive Date: 20120529
  Receipt Date: 20120523
  Transmission Date: 20120825
  Serious: Yes (Other)
  Sender: FDA-Public Use
  Company Number: US-PFIZER INC-2012125291

PATIENT
  Sex: Female
  Weight: 88.435 kg

DRUGS (6)
  1. LYRICA [Suspect]
     Dosage: 750 MG (150MG TWO CAPSULE IN MORNING, 150MG IN AFTERNOON AND 150MG TWO CAPSULE AT NIGHT) IN A DAY
     Route: 048
  2. NIFEDIPINE [Concomitant]
     Indication: HYPERTENSION
     Dosage: 60 MG, UNK
  3. LYRICA [Suspect]
     Indication: NEUROPATHY PERIPHERAL
     Dosage: 150 MG, 3X/DAY
     Route: 048
  4. TRAMADOL [Concomitant]
     Indication: PAIN
     Dosage: UNK
  5. LYRICA [Suspect]
     Dosage: UNK
     Route: 048
  6. METOPROLOL [Concomitant]
     Dosage: UNK, 2X/DAY

REACTIONS (4)
  - DIABETES MELLITUS [None]
  - INCORRECT DOSE ADMINISTERED [None]
  - NEUROPATHY PERIPHERAL [None]
  - PAIN [None]
